FAERS Safety Report 5321780-7 (Version None)
Quarter: 2007Q2

REPORT INFORMATION
  Report Type: 
  Country: None (occurrence: None)
  Receive Date: 20070510
  Receipt Date: 20070430
  Transmission Date: 20071010
  Serious: Yes (Hospitalization)
  Sender: FDA-Public Use
  Company Number: JP-PFIZER INC-2007027941

PATIENT
  Sex: Female

DRUGS (2)
  1. AMLODIN [Suspect]
     Indication: HYPERTENSION
     Dosage: DAILY DOSE:5MG-FREQ:DAILY
     Route: 048
  2. ARICEPT [Suspect]
     Indication: DEMENTIA ALZHEIMER'S TYPE
     Route: 048
     Dates: start: 20060509, end: 20070327

REACTIONS (4)
  - ATRIOVENTRICULAR BLOCK COMPLETE [None]
  - BRADYCARDIA [None]
  - DYSPNOEA [None]
  - OEDEMA [None]
